FAERS Safety Report 9374808 (Version 1)
Quarter: 2013Q2

REPORT INFORMATION
  Report Type: Spontaneous
  Country: US (occurrence: US)
  Receive Date: 20130628
  Receipt Date: 20130628
  Transmission Date: 20140414
  Serious: No
  Sender: FDA-Public Use
  Company Number: US-VIIV HEALTHCARE LIMITED-A1006245A

PATIENT
  Age: 57 Year
  Sex: Male
  Weight: 110.9 kg

DRUGS (5)
  1. DELAVIRDINE [Suspect]
     Indication: HIV INFECTION
  2. LISINOPRIL [Concomitant]
  3. DEPO-TESTOSTERONE [Concomitant]
  4. ATRIPLA [Concomitant]
  5. CRESTOR [Concomitant]
     Dosage: 20MG PER DAY

REACTIONS (1)
  - Rash [Unknown]
